FAERS Safety Report 9157241 (Version 2)
Quarter: 2013Q2

REPORT INFORMATION
  Report Type: Spontaneous
  Country: US (occurrence: US)
  Receive Date: 20130312
  Receipt Date: 20130515
  Transmission Date: 20140414
  Serious: Yes (Death)
  Sender: FDA-Public Use
  Company Number: US-BRISTOL-MYERS SQUIBB COMPANY-17448523

PATIENT
  Age: 68 Year
  Sex: Male

DRUGS (1)
  1. YERVOY [Suspect]
     Indication: MALIGNANT MELANOMA
     Dosage: LOT: 200MG 920172, 50MG 920171 ?EXP: 200MG 31DEC2014, 50MG 30NOV2014
     Route: 042
     Dates: start: 20130111

REACTIONS (1)
  - Malignant neoplasm progression [Fatal]
